FAERS Safety Report 8926921 (Version 1)
Quarter: 2012Q4

REPORT INFORMATION
  Report Type: 
  Country: GB (occurrence: GB)
  Receive Date: 20121127
  Receipt Date: 20121127
  Transmission Date: 20130627
  Serious: Yes (Hospitalization)
  Sender: FDA-Public Use
  Company Number: GB-PFIZER INC-2012293932

PATIENT
  Age: 60 Year
  Sex: Male
  Weight: 89.2 kg

DRUGS (6)
  1. GENOTROPIN [Suspect]
     Dosage: 0.3 mg, 1x/day,7 injections/week
     Route: 058
     Dates: start: 20031015
  2. THYROXINE [Concomitant]
     Indication: UNSPECIFIED HYPOTHYROIDISM
     Dosage: UNK
     Dates: start: 20031110
  3. HYDROCORTISONE [Concomitant]
     Indication: ACTH DECREASED
     Dosage: UNK
     Dates: start: 19991210
  4. SUSTANON [Concomitant]
     Indication: LUTEINIZING HORMONE DEFICIENCY
     Dosage: UNK
     Dates: start: 20010209
  5. SUSTANON [Concomitant]
     Indication: FOLLICLE-STIMULATING HORMONE DEFICIENCY
  6. SUSTANON [Concomitant]
     Indication: TESTICULAR HYPOGONADISM

REACTIONS (1)
  - Sinus disorder [Unknown]
